FAERS Safety Report 20778817 (Version 1)
Quarter: 2022Q2

REPORT INFORMATION
  Report Type: Spontaneous
  Country: US (occurrence: US)
  Receive Date: 20220503
  Receipt Date: 20220503
  Transmission Date: 20220720
  Serious: No
  Sender: FDA-Public Use
  Company Number: US-PFIZER INC-202200633113

PATIENT
  Age: 40 Year
  Sex: Female

DRUGS (3)
  1. PAXLOVID [Suspect]
     Active Substance: NIRMATRELVIR\RITONAVIR
     Indication: COVID-19 treatment
     Dosage: UNK
     Dates: start: 20220413, end: 20220417
  2. PAPAIN [Concomitant]
     Active Substance: PAPAIN
     Dosage: UNK
     Dates: start: 20220325
  3. XYZAL [Concomitant]
     Active Substance: LEVOCETIRIZINE DIHYDROCHLORIDE
     Dosage: UNK
     Dates: start: 20210301

REACTIONS (5)
  - COVID-19 [Recovering/Resolving]
  - Nasal congestion [Recovering/Resolving]
  - Oropharyngeal pain [Recovering/Resolving]
  - Heart rate increased [Recovering/Resolving]
  - Myalgia [Recovering/Resolving]

NARRATIVE: CASE EVENT DATE: 20220422
